FAERS Safety Report 5780229-0 (Version None)
Quarter: 2008Q2

REPORT INFORMATION
  Report Type: 
  Country: None (occurrence: None)
  Receive Date: 20080620
  Receipt Date: 20080611
  Transmission Date: 20081010
  Serious: Yes (Hospitalization)
  Sender: FDA-Public Use
  Company Number: PHHY2008DE10699

PATIENT

DRUGS (2)
  1. ZOLEDRONIC ACID [Suspect]
     Dosage: 5 MG
     Route: 042
  2. IDEOS [Concomitant]
     Route: 048

REACTIONS (4)
  - HEADACHE [None]
  - NAUSEA [None]
  - RETROGRADE AMNESIA [None]
  - SPEECH DISORDER [None]
